FAERS Safety Report 10310831 (Version 1)
Quarter: 2014Q3

REPORT INFORMATION
  Report Type: Spontaneous
  Country: FR (occurrence: None)
  Receive Date: 20140715
  Receipt Date: 20140715
  Transmission Date: 20150326
  Serious: Yes (Hospitalization)
  Sender: FDA-Public Use
  Company Number: SYM-2014-22995

PATIENT
  Age: 86 Year
  Sex: Female

DRUGS (5)
  1. MONO-TILDIEM [Suspect]
     Active Substance: DILTIAZEM HYDROCHLORIDE
     Indication: PRODUCT USED FOR UNKNOWN INDICATION
     Route: 048
  2. BACTRIM [Suspect]
     Active Substance: SULFAMETHOXAZOLE\TRIMETHOPRIM
     Indication: EAR PAIN
     Route: 048
     Dates: start: 20140514, end: 20140517
  3. CAPTEA [Suspect]
     Active Substance: CAPTOPRIL\HYDROCHLOROTHIAZIDE
     Indication: PRODUCT USED FOR UNKNOWN INDICATION
     Route: 048
  4. CILOXAN [Suspect]
     Active Substance: CIPROFLOXACIN HYDROCHLORIDE
     Indication: EAR PAIN
     Route: 048
     Dates: start: 20140514
  5. BETAMETHASONE [Suspect]
     Active Substance: BETAMETHASONE
     Indication: EAR PAIN
     Dosage: AURICULAR (OTIC)
     Dates: start: 20140514

REACTIONS (11)
  - Pyrexia [None]
  - Rash pustular [None]
  - Conjunctivitis [None]
  - Abdominal pain [None]
  - Nausea [None]
  - Pruritus [None]
  - Conjunctival hyperaemia [None]
  - Erythema [None]
  - Oedema peripheral [None]
  - Photosensitivity reaction [None]
  - Cheilitis [None]

NARRATIVE: CASE EVENT DATE: 201405
